FAERS Safety Report 24807183 (Version 2)
Quarter: 2025Q1

REPORT INFORMATION
  Report Type: Spontaneous
  Country: US (occurrence: US)
  Receive Date: 20250105
  Receipt Date: 20250228
  Transmission Date: 20250409
  Serious: No
  Sender: LUPIN
  Company Number: US-LUPIN PHARMACEUTICALS INC.-2024-12666

PATIENT

DRUGS (4)
  1. BUDESONIDE [Suspect]
     Active Substance: BUDESONIDE
     Indication: Chronic obstructive pulmonary disease
  2. BUDESONIDE [Suspect]
     Active Substance: BUDESONIDE
     Indication: Lung disorder
  3. BUDESONIDE [Suspect]
     Active Substance: BUDESONIDE
     Indication: Emphysema
  4. ALBUTEROL [Concomitant]
     Active Substance: ALBUTEROL
     Indication: Product used for unknown indication
     Route: 065

REACTIONS (3)
  - Off label use [Unknown]
  - Product prescribing issue [Unknown]
  - Product packaging quantity issue [Unknown]
